FAERS Safety Report 8480782-2 (Version None)
Quarter: 2012Q2

REPORT INFORMATION
  Report Type: 
  Country: None (occurrence: None)
  Receive Date: 20120622
  Receipt Date: 20120618
  Transmission Date: 20120825
  Serious: Yes (Hospitalization, Other)
  Sender: FDA-Public Use
  Company Number: 2012060102

PATIENT
  Age: 67 Year
  Sex: Male
  Weight: 85.2762 kg

DRUGS (4)
  1. OMEPRAZOLE [Concomitant]
  2. DIOVAN [Concomitant]
  3. AZELASTINE HYDROCHLORIDE [Suspect]
     Indication: RHINITIS ALLERGIC
     Dosage: (274 MCG, AS REQUIRED), IN
     Dates: start: 20000101, end: 20120613
  4. PRAVASTATIN [Concomitant]

REACTIONS (3)
  - HYPOAESTHESIA [None]
  - FEELING HOT [None]
  - TYPE 2 DIABETES MELLITUS [None]
